FAERS Safety Report 23051359 (Version 1)
Quarter: 2023Q4

REPORT INFORMATION
  Report Type: Report from Study
  Country: DE (occurrence: DE)
  Receive Date: 20231010
  Receipt Date: 20231010
  Transmission Date: 20240110
  Serious: Yes (Death, Hospitalization, Other)
  Sender: FDA-Public Use
  Company Number: None

PATIENT
  Age: 58 Year
  Sex: Female
  Weight: 81 kg

DRUGS (30)
  1. DOCETAXEL [Suspect]
     Active Substance: DOCETAXEL
     Indication: HER2 positive breast cancer
     Dosage: 140.25 MILLIGRAM, Q3W
     Route: 042
     Dates: start: 20140331, end: 20140331
  2. DOCETAXEL [Suspect]
     Active Substance: DOCETAXEL
     Dosage: 187 MILLIGRAM, Q3W
     Route: 042
     Dates: start: 20140603, end: 20140624
  3. DOCETAXEL [Suspect]
     Active Substance: DOCETAXEL
     Dosage: 140.25 MILLIGRAM, Q3W
     Route: 042
     Dates: start: 20140513, end: 20140513
  4. DOCETAXEL [Suspect]
     Active Substance: DOCETAXEL
     Dosage: 183 MILLIGRAM, Q3W
     Route: 042
     Dates: start: 20140826, end: 20140916
  5. DOCETAXEL [Suspect]
     Active Substance: DOCETAXEL
     Dosage: 116.4 MILLIGRAM, Q3W
     Route: 042
     Dates: start: 20140310, end: 20140310
  6. DOCETAXEL [Suspect]
     Active Substance: DOCETAXEL
     Dosage: 138.75 MILLIGRAM, Q3W
     Route: 042
     Dates: start: 20140422, end: 20140422
  7. TRASTUZUMAB [Suspect]
     Active Substance: TRASTUZUMAB
     Indication: HER2 positive breast cancer
     Dosage: 444 MILLIGRAM, Q3W
     Route: 042
     Dates: start: 20140331, end: 20140331
  8. TRASTUZUMAB [Suspect]
     Active Substance: TRASTUZUMAB
     Dosage: 432 MILLIGRAM, Q3W
     Route: 042
     Dates: start: 20130422, end: 20130422
  9. TRASTUZUMAB [Suspect]
     Active Substance: TRASTUZUMAB
     Dosage: 422 MILLIGRAM, Q3W
     Route: 042
     Dates: start: 20140805, end: 20141013
  10. TRASTUZUMAB [Suspect]
     Active Substance: TRASTUZUMAB
     Dosage: 648 MILLIGRAM (LOADING DOSE)
     Route: 042
     Dates: start: 20140310, end: 20140310
  11. TRASTUZUMAB [Suspect]
     Active Substance: TRASTUZUMAB
     Dosage: 486 MILLIGRAM, Q3W
     Route: 042
     Dates: start: 20140715, end: 20140715
  12. TRASTUZUMAB [Suspect]
     Active Substance: TRASTUZUMAB
     Dosage: 444 MILLIGRAM, Q3W
     Route: 042
     Dates: start: 20140513, end: 20140513
  13. TRASTUZUMAB [Suspect]
     Active Substance: TRASTUZUMAB
     Dosage: 648 MILLIGRAM, Q3W
     Route: 042
     Dates: end: 20140916
  14. PERJETA [Suspect]
     Active Substance: PERTUZUMAB
     Indication: HER2 positive breast cancer
     Dosage: 840 MILLIGRAM (LOADING DOSE)
     Route: 042
     Dates: start: 20140307, end: 20140307
  15. PERJETA [Suspect]
     Active Substance: PERTUZUMAB
     Dosage: 420 MILLIGRAM, Q3W (MAINTENANCE DOSE)
     Route: 042
     Dates: start: 20140331, end: 20141013
  16. Ciprohexal [Concomitant]
     Indication: Leukopenia
     Dosage: 1000 MILLIGRAM, QD
     Route: 048
     Dates: start: 20140610, end: 20140617
  17. Ciprohexal [Concomitant]
     Dosage: 1000 MILLIGRAM, QD
     Route: 048
     Dates: start: 20140812, end: 20140816
  18. Ciprobay [Concomitant]
     Indication: Neutropenia
     Dosage: 1000 MILLIGRAM, QD
     Route: 048
     Dates: start: 20140319, end: 20140324
  19. Ciprobay [Concomitant]
     Dosage: 1000 MILLIGRAM, QD
     Route: 048
     Dates: start: 20140523, end: 20140527
  20. Ciprobay [Concomitant]
     Dosage: 1000 MILLIGRAM, QD
     Route: 048
     Dates: start: 20140903, end: 20140907
  21. LEVOTHYROXINE SODIUM [Concomitant]
     Active Substance: LEVOTHYROXINE SODIUM
     Indication: Hypothyroidism
     Dosage: 75 MICROGRAM, QD
     Route: 048
  22. DEXAMETHASONE [Concomitant]
     Active Substance: DEXAMETHASONE
     Dosage: 4 MILLIGRAM, QD
     Route: 048
     Dates: start: 20140411, end: 20140413
  23. DEXAMETHASONE [Concomitant]
     Active Substance: DEXAMETHASONE
     Dosage: 4 MILLIGRAM, QD
     Route: 048
     Dates: start: 20140303, end: 20140310
  24. DEXAMETHASONE [Concomitant]
     Active Substance: DEXAMETHASONE
     Dosage: 6 MILLIGRAM, QD
     Route: 048
     Dates: start: 20140408, end: 20140410
  25. DEXAMETHASONE [Concomitant]
     Active Substance: DEXAMETHASONE
     Dosage: 8 MILLIGRAM, QD
     Route: 048
     Dates: start: 20140303, end: 20140407
  26. DEXAMETHASONE [Concomitant]
     Active Substance: DEXAMETHASONE
     Dosage: 8 MILLIGRAM
     Route: 048
     Dates: start: 20140331
  27. DEXAMETHASONE [Concomitant]
     Active Substance: DEXAMETHASONE
     Dosage: 2 MILLIGRAM, QD
     Route: 048
     Dates: start: 20140414, end: 20140416
  28. POTASSIUM [Concomitant]
     Active Substance: POTASSIUM
     Indication: Hypokalaemia
     Dosage: UNK
     Route: 065
  29. CLEMASTINE FUMARATE [Concomitant]
     Active Substance: CLEMASTINE FUMARATE
     Dosage: 2 MILLIGRAM (IN EACH CYCLE)
     Route: 042
     Dates: start: 20140331
  30. RANITIDINE [Concomitant]
     Active Substance: RANITIDINE
     Indication: Premedication
     Dosage: 50 MILLIGRAM
     Route: 042
     Dates: start: 20140331

REACTIONS (17)
  - Metastases to central nervous system [Fatal]
  - Cerebral disorder [Fatal]
  - Dysstasia [Not Recovered/Not Resolved]
  - Fall [Unknown]
  - Gait disturbance [Not Recovered/Not Resolved]
  - Disorientation [Not Recovered/Not Resolved]
  - Visual impairment [Not Recovered/Not Resolved]
  - Dysarthria [Not Recovered/Not Resolved]
  - Balance disorder [Not Recovered/Not Resolved]
  - Compression fracture [Not Recovered/Not Resolved]
  - Leukopenia [Recovered/Resolved]
  - Weight decreased [Not Recovered/Not Resolved]
  - Diarrhoea [Recovered/Resolved]
  - Paraesthesia [Not Recovered/Not Resolved]
  - Vomiting [Recovered/Resolved]
  - Neutropenia [Recovered/Resolved]
  - Fatigue [Not Recovered/Not Resolved]

NARRATIVE: CASE EVENT DATE: 20140312
